FAERS Safety Report 12949782 (Version 1)
Quarter: 2016Q4

REPORT INFORMATION
  Report Type: Spontaneous
  Country: US (occurrence: US)
  Receive Date: 20161116
  Receipt Date: 20161116
  Transmission Date: 20170207
  Serious: No
  Sender: FDA-Public Use
  Company Number: None

PATIENT

DRUGS (2)
  1. ADRENALIN [Suspect]
     Active Substance: EPINEPHRINE
     Route: 042
  2. AKOVAZ [Suspect]
     Active Substance: EPHEDRINE SULFATE
     Route: 042

REACTIONS (2)
  - Product label confusion [None]
  - Product colour issue [None]
